FAERS Safety Report 17371731 (Version 1)
Quarter: 2020Q1

REPORT INFORMATION
  Report Type: Spontaneous
  Country: US (occurrence: US)
  Receive Date: 20200121
  Receipt Date: 20200121
  Transmission Date: 20200409
  Serious: No
  Sender: FDA-Public Use
  Company Number: None

PATIENT
  Age: 18 Year
  Sex: Male
  Weight: 99.79 kg

DRUGS (1)
  1. CLENBUTEROL [Suspect]
     Active Substance: CLENBUTEROL

REACTIONS (3)
  - Ill-defined disorder [None]
  - Product counterfeit [None]
  - Counterfeit product administered [None]

NARRATIVE: CASE EVENT DATE: 20191212
